FAERS Safety Report 9651661 (Version 2)
Quarter: 2013Q4

REPORT INFORMATION
  Report Type: Report from Study
  Country: DE (occurrence: DE)
  Receive Date: 20131029
  Receipt Date: 20131029
  Transmission Date: 20140711
  Serious: Yes (Hospitalization)
  Sender: FDA-Public Use
  Company Number: DE-ASTELLAS-2013US007789

PATIENT
  Age: 10 Year
  Sex: Male

DRUGS (3)
  1. TACROLIMUS OINTMENT [Suspect]
     Indication: DERMATITIS ATOPIC
     Dosage: 0.03 %, UNKNOWN/D
     Route: 061
     Dates: start: 20050511
  2. TACROLIMUS OINTMENT [Suspect]
     Dosage: UD/QD, TIWCE WEEKLY
     Route: 061
     Dates: start: 2006
  3. DAC BASISCREME [Concomitant]
     Indication: DERMATITIS ATOPIC
     Dosage: UNK
     Route: 065

REACTIONS (2)
  - Upper limb fracture [Unknown]
  - Upper limb fracture [Unknown]
